FAERS Safety Report 11782522 (Version 4)
Quarter: 2016Q1

REPORT INFORMATION
  Report Type: Report from Study
  Country: US (occurrence: US)
  Receive Date: 20151127
  Receipt Date: 20160324
  Transmission Date: 20160525
  Serious: Yes (Hospitalization, Other)
  Sender: FDA-Public Use
  Company Number: US-009507513-1511USA010321

PATIENT
  Age: 62 Year
  Sex: Male
  Weight: 99.5 kg

DRUGS (3)
  1. DOXAZOSIN MESYLATE. [Concomitant]
     Active Substance: DOXAZOSIN MESYLATE
     Indication: HYPERTENSION
     Dosage: 4 MG, QD
     Route: 048
     Dates: start: 20130212, end: 20150415
  2. ATORVASTATIN CALCIUM. [Concomitant]
     Active Substance: ATORVASTATIN CALCIUM
     Indication: HYPERLIPIDAEMIA
     Dosage: 40 MG, QD
     Route: 048
     Dates: start: 20130313, end: 20150315
  3. PRINIVIL [Suspect]
     Active Substance: LISINOPRIL
     Indication: HYPERTENSION
     Dosage: 10 MG, QD
     Route: 048
     Dates: start: 20130925, end: 20150316

REACTIONS (20)
  - Influenza [Recovered/Resolved]
  - Atrial flutter [Recovered/Resolved]
  - Sepsis [Unknown]
  - Nocturia [Unknown]
  - Hypotension [Unknown]
  - Prostatic specific antigen increased [Unknown]
  - Overweight [Not Recovered/Not Resolved]
  - Seasonal allergy [Not Recovered/Not Resolved]
  - Benign prostatic hyperplasia [Not Recovered/Not Resolved]
  - Metabolic acidosis [Unknown]
  - Hyperkalaemia [Unknown]
  - Acute hepatic failure [Recovered/Resolved]
  - Cardiac failure [Unknown]
  - Upper respiratory tract infection [Unknown]
  - Thrombocytopenia [Unknown]
  - Acute kidney injury [Recovered/Resolved]
  - Obesity [Not Recovered/Not Resolved]
  - Renal cyst [Unknown]
  - Mitral valve incompetence [Recovered/Resolved]
  - Lactic acidosis [Unknown]

NARRATIVE: CASE EVENT DATE: 20131001
